FAERS Safety Report 4850415-2 (Version None)
Quarter: 2005Q4

REPORT INFORMATION
  Report Type: 
  Country: None (occurrence: None)
  Receive Date: 20051123
  Receipt Date: 20051011
  Transmission Date: 20060501
  Serious: No
  Sender: FDA-Public Use
  Company Number: TPA2005A01246

PATIENT
  Age: 51 Year
  Sex: Female
  Weight: 59.8748 kg

DRUGS (5)
  1. ROZEREM [Suspect]
     Indication: INSOMNIA
     Dosage: 8 MG, QHS, PER ORAL
     Route: 048
     Dates: start: 20051010
  2. SYNTHROID (LEVOTHYROXINE SODIUM) (100 MICROGRAM) [Concomitant]
  3. TOPROL (METOPROLOL SUCCINATE) (25 MILLIGRAM) [Concomitant]
  4. LIPITOR (ATORVASTATIN) (10 MILLIGRAM) [Concomitant]
  5. TRAZODONE (TRAZODONE) (50 MILLIGRAM) [Concomitant]

REACTIONS (1)
  - FEELING ABNORMAL [None]
